FAERS Safety Report 19325766 (Version 2)
Quarter: 2021Q2

REPORT INFORMATION
  Report Type: Spontaneous
  Country: JP (occurrence: JP)
  Receive Date: 20210528
  Receipt Date: 20210610
  Transmission Date: 20210717
  Serious: Yes (Other)
  Sender: FDA-Public Use
  Company Number: JP-OTSUKA-2021_017655

PATIENT
  Age: 47 Year
  Sex: Male

DRUGS (15)
  1. SAMSCA [Suspect]
     Active Substance: TOLVAPTAN
     Dosage: 3.75 MG, QD
     Route: 048
  2. DOBUTAMINE [DOBUTAMINE HYDROCHLORIDE] [Concomitant]
     Active Substance: DOBUTAMINE HYDROCHLORIDE
     Dosage: 1.0
     Route: 065
  3. DOBUTAMINE [DOBUTAMINE HYDROCHLORIDE] [Concomitant]
     Active Substance: DOBUTAMINE HYDROCHLORIDE
     Dosage: 1.2
     Route: 065
  4. FUROSEMIDE. [Concomitant]
     Active Substance: FUROSEMIDE
     Indication: PRODUCT USED FOR UNKNOWN INDICATION
     Dosage: 40 MG, QD
     Route: 042
  5. AZOSEMIDE [Concomitant]
     Active Substance: AZOSEMIDE
     Dosage: 45 MG, QD
     Route: 065
  6. DOBUTAMINE [DOBUTAMINE HYDROCHLORIDE] [Concomitant]
     Active Substance: DOBUTAMINE HYDROCHLORIDE
     Dosage: 1.8
     Route: 065
  7. DOBUTAMINE [DOBUTAMINE HYDROCHLORIDE] [Concomitant]
     Active Substance: DOBUTAMINE HYDROCHLORIDE
     Dosage: 1.8
     Route: 065
  8. AZOSEMIDE [Concomitant]
     Active Substance: AZOSEMIDE
     Indication: PRODUCT USED FOR UNKNOWN INDICATION
     Dosage: 60 MG, QD
     Route: 065
  9. DOBUTAMINE [DOBUTAMINE HYDROCHLORIDE] [Concomitant]
     Active Substance: DOBUTAMINE HYDROCHLORIDE
     Indication: PRODUCT USED FOR UNKNOWN INDICATION
     Dosage: 2.0 GAMMA
     Route: 065
  10. DOBUTAMINE [DOBUTAMINE HYDROCHLORIDE] [Concomitant]
     Active Substance: DOBUTAMINE HYDROCHLORIDE
     Dosage: 1.4
     Route: 065
  11. DOBUTAMINE [DOBUTAMINE HYDROCHLORIDE] [Concomitant]
     Active Substance: DOBUTAMINE HYDROCHLORIDE
     Dosage: 2.0
     Route: 065
  12. DOBUTAMINE [DOBUTAMINE HYDROCHLORIDE] [Concomitant]
     Active Substance: DOBUTAMINE HYDROCHLORIDE
     Dosage: 1.3
     Route: 065
  13. DOBUTAMINE [DOBUTAMINE HYDROCHLORIDE] [Concomitant]
     Active Substance: DOBUTAMINE HYDROCHLORIDE
     Dosage: 1.6
     Route: 065
  14. AZOSEMIDE [Concomitant]
     Active Substance: AZOSEMIDE
     Dosage: 30 MG, QD
     Route: 065
  15. SAMSCA [Suspect]
     Active Substance: TOLVAPTAN
     Indication: CONGESTIVE CARDIOMYOPATHY
     Dosage: 7.5 MG, QD
     Route: 048

REACTIONS (2)
  - Product use in unapproved indication [Unknown]
  - Syncope [Recovered/Resolved]
